FAERS Safety Report 4356121-5 (Version None)
Quarter: 2004Q2

REPORT INFORMATION
  Report Type: 
  Country: None (occurrence: None)
  Receive Date: 20040511
  Receipt Date: 20021122
  Transmission Date: 20050107
  Serious: Yes (Death, Hospitalization, Disabling, Other)
  Sender: FDA-Public Use
  Company Number: DE-GLAXOSMITHKLINE-D0039871A

PATIENT
  Age: 69 Year
  Sex: Female
  Weight: 45 kg

DRUGS (4)
  1. ELOBACT [Suspect]
     Indication: SINUSITIS
     Dosage: 500MG TWICE PER DAY
     Route: 048
     Dates: start: 20020505, end: 20021018
  2. DEVARON [Concomitant]
     Route: 065
  3. KONAKION [Concomitant]
     Route: 065
  4. URSACOL [Concomitant]
     Route: 065

REACTIONS (7)
  - BILIARY TRACT DISORDER [None]
  - DIARRHOEA [None]
  - JAUNDICE [None]
  - METASTASIS [None]
  - NAUSEA [None]
  - PRURITUS [None]
  - WEIGHT DECREASED [None]
